FAERS Safety Report 19449515 (Version 1)
Quarter: 2021Q2

REPORT INFORMATION
  Report Type: Spontaneous
  Country: US (occurrence: US)
  Receive Date: 20210622
  Receipt Date: 20210622
  Transmission Date: 20210717
  Serious: No
  Sender: FDA-Public Use
  Company Number: US-ASTELLAS-2021US005408

PATIENT
  Age: 27 Year
  Sex: Male

DRUGS (5)
  1. MYRBETRIQ [Concomitant]
     Active Substance: MIRABEGRON
     Indication: NEUROGENIC BLADDER
     Route: 048
     Dates: start: 202101, end: 202101
  2. MYRBETRIQ [Concomitant]
     Active Substance: MIRABEGRON
     Indication: NEUROGENIC BLADDER
     Route: 048
     Dates: start: 202101, end: 20210221
  3. VESICARE [Suspect]
     Active Substance: SOLIFENACIN SUCCINATE
     Indication: NEUROGENIC BLADDER
     Route: 048
     Dates: start: 20210113
  4. MYRBETRIQ [Concomitant]
     Active Substance: MIRABEGRON
     Route: 048
     Dates: start: 20210222
  5. BACLOFEN. [Concomitant]
     Active Substance: BACLOFEN
     Indication: PRODUCT USED FOR UNKNOWN INDICATION
     Dosage: UNK UNK, UNKNOWN FREQ.
     Route: 065

REACTIONS (2)
  - Product use in unapproved indication [Unknown]
  - Reduced bladder capacity [Not Recovered/Not Resolved]

NARRATIVE: CASE EVENT DATE: 20210113
